FAERS Safety Report 8441694-3 (Version None)
Quarter: 2012Q2

REPORT INFORMATION
  Report Type: 
  Country: None (occurrence: None)
  Receive Date: 20120615
  Receipt Date: 20120613
  Transmission Date: 20120825
  Serious: Yes (Life-Threatening, Hospitalization)
  Sender: FDA-Public Use
  Company Number: US-B.I. PHARMACEUTICALS,INC./RIDGEFIELD-2012-BP-04666BP

PATIENT
  Sex: Female
  Weight: 51.7 kg

DRUGS (17)
  1. COUMADIN [Suspect]
  2. IMODIUM A-D [Concomitant]
     Route: 048
  3. HYDROCODONE-ACETAMINOPHIN [Concomitant]
     Route: 048
  4. TEMAZEPAM [Concomitant]
     Route: 048
  5. FLORASTOR [Concomitant]
     Dosage: 500 MG
     Route: 048
  6. ROSUVASTATIN [Concomitant]
     Dosage: 10 MG
     Route: 048
  7. FEXOFENADINE HCL [Concomitant]
     Dosage: 180 MG
     Route: 048
  8. LACTASE [Concomitant]
     Dosage: 9000 U
     Route: 048
  9. ASCORBIC ACID [Concomitant]
     Dosage: 1000 MG
     Route: 048
  10. PROTONIX [Concomitant]
     Dosage: 100 U
     Route: 048
  11. PRADAXA [Suspect]
     Indication: ATRIAL FIBRILLATION
     Dosage: 300 MG
     Route: 048
     Dates: start: 20120120
  12. M.V.I. [Concomitant]
     Route: 048
  13. COLACE [Concomitant]
     Dosage: 100 U
     Route: 048
  14. D 1000 PLUS [Concomitant]
     Route: 048
  15. FISH OIL CONCENTRATE [Concomitant]
     Dosage: 1000 MG
     Route: 048
  16. CARDIZEM CD [Concomitant]
     Dosage: 120 MG
     Route: 048
  17. ASPIR-81 [Concomitant]
     Dosage: 81 MG
     Route: 048

REACTIONS (4)
  - DYSPNOEA [None]
  - CHOLELITHIASIS [None]
  - PERICARDIAL HAEMORRHAGE [None]
  - HAEMATURIA [None]
